FAERS Safety Report 14897024 (Version 1)
Quarter: 2018Q2

REPORT INFORMATION
  Report Type: Spontaneous
  Country: US (occurrence: US)
  Receive Date: 20180515
  Receipt Date: 20180515
  Transmission Date: 20180711
  Serious: Yes (Other)
  Sender: FDA-Public Use
  Company Number: US-SA-2018SA136283

PATIENT
  Age: 69 Year
  Sex: Female

DRUGS (2)
  1. SOLOSTAR [Suspect]
     Active Substance: DEVICE
     Indication: DIABETES MELLITUS
     Route: 051
     Dates: start: 2017
  2. LANTUS SOLOSTAR [Suspect]
     Active Substance: INSULIN GLARGINE
     Indication: DIABETES MELLITUS
     Dosage: DOSE:50 UNIT(S)
     Route: 051
     Dates: start: 2017

REACTIONS (6)
  - Gastric ulcer [Unknown]
  - Product use issue [Unknown]
  - Dyspnoea [Unknown]
  - Neck surgery [Unknown]
  - Pneumonia [Unknown]
  - Cardiac disorder [Unknown]
